FAERS Safety Report 11856672 (Version 2)
Quarter: 2016Q1

REPORT INFORMATION
  Report Type: Report from Study
  Country: LB (occurrence: LB)
  Receive Date: 20151221
  Receipt Date: 20160111
  Transmission Date: 20160526
  Serious: Yes (Other)
  Sender: FDA-Public Use
  Company Number: LB-KOWA-13EU000007

PATIENT

DRUGS (2)
  1. PITAVASTATIN [Suspect]
     Active Substance: PITAVASTATIN
     Dosage: 2 MG, UNK
  2. PITAVASTATIN [Suspect]
     Active Substance: PITAVASTATIN
     Indication: PRODUCT USED FOR UNKNOWN INDICATION
     Dosage: 4 MG, UNK

REACTIONS (1)
  - Coronary artery bypass [Unknown]
